FAERS Safety Report 14907716 (Version 1)
Quarter: 2018Q2

REPORT INFORMATION
  Report Type: Spontaneous
  Country: US (occurrence: US)
  Receive Date: 20180517
  Receipt Date: 20180517
  Transmission Date: 20180711
  Serious: No
  Sender: FDA-Public Use
  Company Number: US-VANDA PHARMACEUTICALS, INC-2018ILOUS001673

PATIENT
  Age: 65 Year
  Sex: Male

DRUGS (5)
  1. PROPRANOLOL [Concomitant]
     Active Substance: PROPRANOLOL HYDROCHLORIDE
     Indication: PRODUCT USED FOR UNKNOWN INDICATION
  2. FANAPT [Suspect]
     Active Substance: ILOPERIDONE
     Indication: BIPOLAR I DISORDER
     Dosage: 1 MG, UNK
     Route: 048
     Dates: start: 20171108
  3. FANAPT [Suspect]
     Active Substance: ILOPERIDONE
     Dosage: 4 MG, UNK
     Route: 048
     Dates: end: 20171110
  4. FANAPT [Suspect]
     Active Substance: ILOPERIDONE
     Dosage: 2 MG, UNK
     Route: 048
  5. ATIVAN [Concomitant]
     Active Substance: LORAZEPAM
     Indication: PRODUCT USED FOR UNKNOWN INDICATION

REACTIONS (2)
  - Dysarthria [Recovered/Resolved]
  - Gait disturbance [Recovered/Resolved]

NARRATIVE: CASE EVENT DATE: 20171109
